FAERS Safety Report 15092821 (Version 1)
Quarter: 2018Q2

REPORT INFORMATION
  Report Type: Spontaneous
  Country: US (occurrence: US)
  Receive Date: 20180629
  Receipt Date: 20180629
  Transmission Date: 20180711
  Serious: Yes (Hospitalization)
  Sender: FDA-Public Use
  Company Number: US-JNJFOC-20180633019

PATIENT
  Age: 54 Year
  Sex: Male
  Weight: 88.1 kg

DRUGS (1)
  1. XARELTO [Suspect]
     Active Substance: RIVAROXABAN
     Indication: DEEP VEIN THROMBOSIS
     Route: 048
     Dates: start: 20150915, end: 20160316

REACTIONS (1)
  - Cirrhosis alcoholic [Recovering/Resolving]

NARRATIVE: CASE EVENT DATE: 20160316
